FAERS Safety Report 17289630 (Version 1)
Quarter: 2020Q1

REPORT INFORMATION
  Report Type: Spontaneous
  Country: US (occurrence: US)
  Receive Date: 20200120
  Receipt Date: 20200120
  Transmission Date: 20200409
  Serious: No
  Sender: FDA-Public Use
  Company Number: US-009507513-2001USA004191

PATIENT
  Sex: Male

DRUGS (5)
  1. TIVICAY [Concomitant]
     Active Substance: DOLUTEGRAVIR SODIUM
  2. UBIDECARENONE [Concomitant]
     Active Substance: UBIDECARENONE
     Dosage: UNK
     Dates: end: 201911
  3. PIFELTRO [Suspect]
     Active Substance: DORAVIRINE
     Indication: HIV INFECTION
     Dosage: 1 TABLET (STRENGTH: 100 MG), ONCE A DAY
     Route: 048
     Dates: start: 2019
  4. PIFELTRO [Suspect]
     Active Substance: DORAVIRINE
     Dosage: 1 TABLET (STRENGTH: 100 MG), ONCE A DAY
     Route: 048
  5. BACLOFEN. [Concomitant]
     Active Substance: BACLOFEN
     Dosage: UNK
     Dates: end: 202001

REACTIONS (6)
  - Product dose omission [Unknown]
  - Chest pain [Recovered/Resolved]
  - Chest pain [Unknown]
  - Dyspepsia [Not Recovered/Not Resolved]
  - Product use issue [Unknown]
  - Hypoaesthesia [Not Recovered/Not Resolved]

NARRATIVE: CASE EVENT DATE: 2019
